FAERS Safety Report 15725185 (Version 1)
Quarter: 2018Q4

REPORT INFORMATION
  Report Type: Spontaneous
  Country: FR (occurrence: FR)
  Receive Date: 20181215
  Receipt Date: 20181215
  Transmission Date: 20190205
  Serious: Yes (Hospitalization)
  Sender: FDA-Public Use
  Company Number: FR-SUN PHARMACEUTICAL INDUSTRIES LTD-2018RR-193671

PATIENT
  Age: 13 Year
  Sex: Female
  Weight: 52 kg

DRUGS (3)
  1. IBUPROFENE [Suspect]
     Active Substance: IBUPROFEN
     Indication: TOXICITY TO VARIOUS AGENTS
     Route: 048
     Dates: start: 20181112
  2. LEXOMIL ROCHE [Suspect]
     Active Substance: BROMAZEPAM
     Indication: TOXICITY TO VARIOUS AGENTS
     Dosage: VARIABLE ()
     Route: 048
     Dates: start: 20181111, end: 20181113
  3. PARACETAMOL [Suspect]
     Active Substance: ACETAMINOPHEN
     Indication: TOXICITY TO VARIOUS AGENTS
     Dosage: MAXIMUM 8 CP ()
     Route: 048
     Dates: start: 20181112

REACTIONS (2)
  - Toxicity to various agents [Recovered/Resolved]
  - Drug level increased [Unknown]

NARRATIVE: CASE EVENT DATE: 20181111
